FAERS Safety Report 14192140 (Version 2)
Quarter: 2017Q4

REPORT INFORMATION
  Report Type: Spontaneous
  Country: JP (occurrence: JP)
  Receive Date: 20171115
  Receipt Date: 20171122
  Transmission Date: 20180321
  Serious: Yes (Other)
  Sender: FDA-Public Use
  Company Number: JP-BRACCO-2017JP05156

PATIENT
  Age: 50 Year
  Sex: Female

DRUGS (1)
  1. IOPAMIRON [Suspect]
     Active Substance: IOPAMIDOL
     Indication: DIAGNOSTIC PROCEDURE
     Dosage: UNK, SINGLE
     Dates: start: 201607, end: 201607

REACTIONS (2)
  - Stevens-Johnson syndrome [Unknown]
  - Oculomucocutaneous syndrome [Unknown]
